FAERS Safety Report 6881884-4 (Version None)
Quarter: 2010Q3

REPORT INFORMATION
  Report Type: 
  Country: None (occurrence: None)
  Receive Date: 20100729
  Receipt Date: 20100715
  Transmission Date: 20110219
  Serious: Yes (Other)
  Sender: FDA-Public Use
  Company Number: US-WYE-H16230110

PATIENT

DRUGS (1)
  1. CORDARONE [Suspect]
     Dosage: 200 MG TABLETS

REACTIONS (1)
  - CARDIAC VALVE DISEASE [None]
